FAERS Safety Report 5513424-6 (Version None)
Quarter: 2007Q4

REPORT INFORMATION
  Report Type: 
  Country: None (occurrence: None)
  Receive Date: 20071112
  Receipt Date: 20071031
  Transmission Date: 20080405
  Serious: Yes (Hospitalization)
  Sender: FDA-Public Use
  Company Number: PFIZER INC-2007081430

PATIENT
  Sex: Female
  Weight: 63 kg

DRUGS (6)
  1. MARAVIROC [Suspect]
     Indication: HIV INFECTION
     Route: 048
  2. MK-0518 [Suspect]
     Indication: HIV INFECTION
     Route: 048
  3. TMC114 [Concomitant]
     Route: 048
  4. RITONAVIR [Concomitant]
     Route: 048
  5. TENOFOVIR DISOPROXIL FUMARATE [Concomitant]
     Route: 048
  6. EPIVIR [Concomitant]
     Route: 048

REACTIONS (3)
  - ABDOMINAL PAIN LOWER [None]
  - VERTIGO [None]
  - VISUAL DISTURBANCE [None]
